FAERS Safety Report 11531174 (Version 1)
Quarter: 2015Q3

REPORT INFORMATION
  Report Type: Spontaneous
  Country: US (occurrence: US)
  Receive Date: 20150903
  Receipt Date: 20150903
  Transmission Date: 20151125
  Serious: No
  Sender: FDA-Public Use
  Company Number: US-ELI_LILLY_AND_COMPANY-US201305004319

PATIENT
  Sex: Female
  Weight: 69.84 kg

DRUGS (3)
  1. CYMBALTA [Suspect]
     Active Substance: DULOXETINE HYDROCHLORIDE
     Dosage: 20 MG, QD
     Route: 048
     Dates: end: 20130514
  2. CYMBALTA [Suspect]
     Active Substance: DULOXETINE HYDROCHLORIDE
     Indication: PAIN
     Dosage: 60 MG, QD
     Route: 048
     Dates: start: 2012
  3. CYMBALTA [Suspect]
     Active Substance: DULOXETINE HYDROCHLORIDE
     Dosage: 20 MG, EVERY OTHER DAY
     Route: 048

REACTIONS (6)
  - Mental disorder [Recovered/Resolved]
  - Depression [Recovered/Resolved]
  - Affect lability [Recovered/Resolved]
  - Vertigo [Recovered/Resolved]
  - Crying [Recovered/Resolved]
  - Drug withdrawal syndrome [Recovered/Resolved]
